FAERS Safety Report 5209198-9 (Version None)
Quarter: 2007Q1

REPORT INFORMATION
  Report Type: 
  Country: None (occurrence: None)
  Receive Date: 20070111
  Receipt Date: 20061229
  Transmission Date: 20070707
  Serious: Yes (Other)
  Sender: FDA-Public Use
  Company Number: HQWYE190102JAN07

PATIENT
  Age: 63 Year
  Sex: Female

DRUGS (3)
  1. PROTONIX [Suspect]
     Indication: GASTROOESOPHAGEAL REFLUX DISEASE
     Dosage: 40 MG 1X PER 1 DAY ORAL
     Route: 048
  2. ATORVASTATIN CALCIUM [Suspect]
     Indication: HYPERCHOLESTEROLAEMIA
     Dosage: 20 MG 1X PER 1 DAY ORAL
     Route: 048
  3. HYDROCHLOROTHIAZIDE [Suspect]
     Indication: ESSENTIAL HYPERTENSION
     Dosage: 25 MG 1X PER 1 DAY ORAL
     Route: 048

REACTIONS (2)
  - ANGINA UNSTABLE [None]
  - TRANSIENT ISCHAEMIC ATTACK [None]
